FAERS Safety Report 5504866-3 (Version None)
Quarter: 2007Q4

REPORT INFORMATION
  Report Type: 
  Country: None (occurrence: None)
  Receive Date: 20071102
  Receipt Date: 20071024
  Transmission Date: 20080405
  Serious: Yes (Other)
  Sender: FDA-Public Use
  Company Number: GB-WYE-G00523507

PATIENT
  Sex: Female

DRUGS (4)
  1. VENLAFAXIINE HCL [Interacting]
     Dosage: UNKNOWN
  2. LEVOTHYROXINE SODIUM [Suspect]
     Dosage: DOSE NOT STATED, ONCE DAILY
     Route: 048
  3. ORLISTAT [Interacting]
     Dosage: DOSE NOT STATED, ONCE DAILY
     Route: 048
     Dates: start: 20040215, end: 20050915
  4. CHLORPROMAZINE [Suspect]
     Dosage: DOSE NOT STATED, ONCE DAILY
     Route: 048

REACTIONS (2)
  - DRUG INTERACTION [None]
  - PSYCHIATRIC SYMPTOM [None]
